FAERS Safety Report 5007668-X (Version None)
Quarter: 2006Q2

REPORT INFORMATION
  Report Type: 
  Country: None (occurrence: None)
  Receive Date: 20060405
  Receipt Date: 20051003
  Transmission Date: 20061013
  Serious: Yes (Disabling)
  Sender: FDA-Public Use
  Company Number: PHEH2005US10989

PATIENT
  Age: 39 Year
  Sex: Female

DRUGS (3)
  1. VIVELLE-DOT [Suspect]
     Indication: OESTROGEN REPLACEMENT THERAPY
     Dosage: 0.1 MG/DAY, 2X WEEKLY, TRANSDERMAL
     Route: 062
     Dates: start: 20010207
  2. NEURONTIN [Concomitant]
  3. CLONAZEPAM [Concomitant]

REACTIONS (2)
  - DEPRESSION [None]
  - OESTRADIOL DECREASED [None]
